FAERS Safety Report 5168227-1 (Version None)
Quarter: 2006Q4

REPORT INFORMATION
  Report Type: 
  Country: None (occurrence: None)
  Receive Date: 20061208
  Receipt Date: 19990812
  Transmission Date: 20070319
  Serious: Yes (Hospitalization)
  Sender: FDA-Public Use
  Company Number: FR-GLAXOSMITHKLINE-B0069717A

PATIENT
  Age: 15 Week
  Sex: Female
  Weight: 11 kg

DRUGS (5)
  1. ZIDOVUDINE [Suspect]
     Indication: HUMAN IMMUNODEFICIENCY VIRUS TRANSMISSION
     Route: 048
     Dates: start: 19970923, end: 19971113
  2. LAMIVUDINE [Suspect]
     Indication: HUMAN IMMUNODEFICIENCY VIRUS TRANSMISSION
     Route: 048
     Dates: start: 19970923, end: 19971113
  3. ZIDOVUDINE [Suspect]
     Route: 048
  4. LAMIVUDINE [Suspect]
     Route: 048
  5. STAVUDINE [Suspect]
     Indication: HUMAN IMMUNODEFICIENCY VIRUS TRANSMISSION

REACTIONS (13)
  - BRONCHIOLITIS [None]
  - DRUG EXPOSURE DURING PREGNANCY [None]
  - DYSTONIA [None]
  - FEBRILE CONVULSION [None]
  - GASTROOESOPHAGEAL REFLUX DISEASE [None]
  - HYPOTONIA [None]
  - LOSS OF CONSCIOUSNESS [None]
  - MITOCHONDRIAL CYTOPATHY [None]
  - MUSCULOSKELETAL STIFFNESS [None]
  - PREMATURE BABY [None]
  - REFLEXES ABNORMAL [None]
  - SICKLE CELL ANAEMIA [None]
  - TRANSAMINASES INCREASED [None]
